FAERS Safety Report 6016005-3 (Version None)
Quarter: 2008Q4

REPORT INFORMATION
  Report Type: 
  Country: None (occurrence: None)
  Receive Date: 20081222
  Receipt Date: 20081212
  Transmission Date: 20090506
  Serious: Yes (Other)
  Sender: FDA-Public Use
  Company Number: US-AVENTIS-200818496US

PATIENT
  Sex: Male

DRUGS (6)
  1. LANTUS [Suspect]
     Route: 058
  2. LANTUS [Suspect]
     Route: 058
  3. APIDRA [Suspect]
     Dosage: DOSE: SLIDING SCALING
     Route: 058
  4. PLAVIX [Concomitant]
     Dosage: DOSE: UNK
  5. CARDIZEM [Concomitant]
     Dosage: DOSE: UNK
  6. ASPIRIN [Concomitant]
     Dosage: DOSE: UNK

REACTIONS (3)
  - CONDITION AGGRAVATED [None]
  - CONSTIPATION [None]
  - HALLUCINATION [None]
